FAERS Safety Report 14137309 (Version 1)
Quarter: 2017Q4

REPORT INFORMATION
  Report Type: Spontaneous
  Country: US (occurrence: US)
  Receive Date: 20171027
  Receipt Date: 20171027
  Transmission Date: 20180321
  Serious: No
  Sender: FDA-Public Use
  Company Number: US-GLAXOSMITHKLINE-US2017161723

PATIENT
  Age: 56 Year
  Sex: Male

DRUGS (1)
  1. EQUATE NICOTINE [Suspect]
     Active Substance: NICOTINE
     Indication: DRUG WITHDRAWAL MAINTENANCE THERAPY
     Dosage: 21 MG, PRN
     Route: 062
     Dates: start: 20171017, end: 20171019

REACTIONS (2)
  - Abdominal discomfort [Not Recovered/Not Resolved]
  - Diarrhoea [Recovered/Resolved]

NARRATIVE: CASE EVENT DATE: 20171018
